FAERS Safety Report 5836294-5 (Version None)
Quarter: 2008Q3

REPORT INFORMATION
  Report Type: 
  Country: None (occurrence: None)
  Receive Date: 20080805
  Receipt Date: 20080729
  Transmission Date: 20090109
  Serious: Yes (Other)
  Sender: FDA-Public Use
  Company Number: 2008BI017284

PATIENT
  Sex: Female

DRUGS (1)
  1. TYSABRI [Suspect]
     Indication: MULTIPLE SCLEROSIS
     Dosage: 300 MG;QM;IV
     Route: 042
     Dates: start: 20080430

REACTIONS (5)
  - BALANCE DISORDER [None]
  - BLOOD SODIUM DECREASED [None]
  - CATHETER RELATED INFECTION [None]
  - GAIT DISTURBANCE [None]
  - STAPHYLOCOCCAL INFECTION [None]
